FAERS Safety Report 18503943 (Version 3)
Quarter: 2020Q4

REPORT INFORMATION
  Report Type: Spontaneous
  Country: LT (occurrence: LT)
  Receive Date: 20201113
  Receipt Date: 20201216
  Transmission Date: 20210114
  Serious: Yes (Death, Hospitalization, Other)
  Sender: FDA-Public Use
  Company Number: LT-BAYER-2020-241757

PATIENT
  Age: 60 Year
  Sex: Male

DRUGS (10)
  1. XOFIGO [Suspect]
     Active Substance: RADIUM RA-223 DICHLORIDE
     Indication: HORMONE-REFRACTORY PROSTATE CANCER
     Dosage: UNK
     Dates: start: 20200917, end: 20200917
  2. FENTANYL. [Concomitant]
     Active Substance: FENTANYL
     Dosage: UNK
  3. TRAMADOL. [Concomitant]
     Active Substance: TRAMADOL
     Dosage: UNK
  4. ONDANSETRON [Concomitant]
     Active Substance: ONDANSETRON
     Dosage: UNK
  5. DENOSUMAB [Concomitant]
     Active Substance: DENOSUMAB
     Dosage: UNK
  6. PARACETAMOL [Concomitant]
     Active Substance: ACETAMINOPHEN
     Dosage: UNK
  7. TORSEMIDE. [Concomitant]
     Active Substance: TORSEMIDE
     Dosage: UNK
  8. XOFIGO [Suspect]
     Active Substance: RADIUM RA-223 DICHLORIDE
     Indication: HORMONE-REFRACTORY PROSTATE CANCER
     Dosage: UNK
     Dates: start: 20201015, end: 20201015
  9. TRIPTORELIN [Concomitant]
     Active Substance: TRIPTORELIN
     Dosage: UNK
  10. MEGESTROL [Concomitant]
     Active Substance: MEGESTROL
     Dosage: UNK

REACTIONS (13)
  - Nausea [None]
  - Hepatosplenomegaly [None]
  - Hepatic enzyme increased [None]
  - Portal hypertension [Fatal]
  - Asthenia [None]
  - Ascites [None]
  - Hepatic failure [Fatal]
  - Coma hepatic [Fatal]
  - Hepatotoxicity [Fatal]
  - Hepatic encephalopathy [Fatal]
  - Dyspnoea [None]
  - Vomiting [None]
  - Pelvic pain [None]
